FAERS Safety Report 5834512-0 (Version None)
Quarter: 2008Q3

REPORT INFORMATION
  Report Type: 
  Country: None (occurrence: None)
  Receive Date: 20080805
  Receipt Date: 20080724
  Transmission Date: 20090109
  Serious: Yes (Hospitalization, Other)
  Sender: FDA-Public Use
  Company Number: US-PFIZER INC-2008062735

PATIENT
  Sex: Male
  Weight: 69 kg

DRUGS (2)
  1. DILANTIN KAPSEALS [Suspect]
     Indication: POST-TRAUMATIC EPILEPSY
     Dates: start: 20040501, end: 20040602
  2. LORTAB [Concomitant]

REACTIONS (14)
  - ANAEMIA [None]
  - BLOOD ALBUMIN DECREASED [None]
  - BLOOD OSMOLARITY DECREASED [None]
  - CONSTIPATION [None]
  - DECREASED APPETITE [None]
  - EAR PAIN [None]
  - FATIGUE [None]
  - HYPONATRAEMIA [None]
  - MALAISE [None]
  - OXYGEN SATURATION DECREASED [None]
  - PAIN [None]
  - PNEUMONIA [None]
  - STEVENS-JOHNSON SYNDROME [None]
  - TOXIC EPIDERMAL NECROLYSIS [None]
